FAERS Safety Report 6589021-0 (Version None)
Quarter: 2010Q1

REPORT INFORMATION
  Report Type: 
  Country: None (occurrence: None)
  Receive Date: 20100218
  Receipt Date: 20100209
  Transmission Date: 20100710
  Serious: Yes (Other)
  Sender: FDA-Public Use
  Company Number: US-BAXTER-2009BH017009

PATIENT
  Age: 79 Year
  Sex: Male
  Weight: 84 kg

DRUGS (17)
  1. HEPARIN SODIUM INJECTION [Suspect]
     Indication: ATRIAL FIBRILLATION
     Route: 042
     Dates: start: 20080202, end: 20080210
  2. HEPARIN SODIUM INJECTION [Suspect]
     Indication: PNEUMONIA
     Route: 042
     Dates: start: 20080202, end: 20080210
  3. HEPARIN SODIUM INJECTION [Suspect]
     Indication: INTRAVENOUS CATHETER MANAGEMENT
     Route: 042
     Dates: start: 20080202, end: 20080210
  4. HEPARIN SODIUM INJECTION [Suspect]
     Route: 042
     Dates: start: 20080302, end: 20080305
  5. HEPARIN SODIUM INJECTION [Suspect]
     Route: 042
     Dates: start: 20080302, end: 20080305
  6. HEPARIN SODIUM INJECTION [Suspect]
     Route: 042
     Dates: start: 20080302, end: 20080305
  7. HEPARIN SODIUM INJECTION [Suspect]
     Route: 042
     Dates: start: 20080101
  8. HEPARIN SODIUM INJECTION [Suspect]
     Route: 042
     Dates: start: 20080101
  9. HEPARIN SODIUM INJECTION [Suspect]
     Route: 042
     Dates: start: 20080101
  10. HEPARIN SODIUM INJECTION [Suspect]
     Route: 042
     Dates: start: 20080101
  11. HEPARIN SODIUM INJECTION [Suspect]
     Route: 042
     Dates: start: 20080101
  12. HEPARIN SODIUM INJECTION [Suspect]
     Route: 042
     Dates: start: 20080101
  13. HEPARIN SODIUM 5,000 UNITS IN DEXTROSE 5% [Suspect]
     Indication: ATRIAL FIBRILLATION
     Route: 041
  14. HEPARIN SODIUM 5,000 UNITS IN DEXTROSE 5% [Suspect]
     Indication: PNEUMONIA
     Route: 041
  15. ALTACE [Concomitant]
     Indication: DRUG USE FOR UNKNOWN INDICATION
     Route: 065
  16. NORVARC [Concomitant]
     Indication: DRUG USE FOR UNKNOWN INDICATION
     Route: 065
  17. WARFARIN SODIUM [Concomitant]
     Indication: DRUG USE FOR UNKNOWN INDICATION
     Route: 065

REACTIONS (13)
  - ABDOMINAL PAIN [None]
  - DECREASED APPETITE [None]
  - DYSPHAGIA [None]
  - DYSPNOEA [None]
  - HAEMORRHAGE [None]
  - HALLUCINATION [None]
  - HYPOTENSION [None]
  - MENTAL DISORDER [None]
  - NEUROPATHY PERIPHERAL [None]
  - RENAL FAILURE [None]
  - RETROPERITONEAL HAEMATOMA [None]
  - UNRESPONSIVE TO STIMULI [None]
  - WALKING AID USER [None]
